FAERS Safety Report 21682329 (Version 2)
Quarter: 2022Q4

REPORT INFORMATION
  Report Type: Spontaneous
  Country: US (occurrence: None)
  Receive Date: 20221205
  Receipt Date: 20221215
  Transmission Date: 20230113
  Serious: Yes (Other)
  Sender: FDA-Public Use
  Company Number: US-ROCHE-3192004

PATIENT
  Age: 27 Year
  Sex: Male
  Weight: 61.5 kg

DRUGS (10)
  1. XOLAIR [Suspect]
     Active Substance: OMALIZUMAB
     Indication: Asthma
     Route: 058
     Dates: start: 20090209
  2. XOLAIR [Suspect]
     Active Substance: OMALIZUMAB
  3. XOLAIR [Suspect]
     Active Substance: OMALIZUMAB
     Route: 058
     Dates: start: 20200904
  4. XOLAIR [Suspect]
     Active Substance: OMALIZUMAB
  5. XOLAIR [Suspect]
     Active Substance: OMALIZUMAB
     Route: 058
     Dates: start: 20200904
  6. XOLAIR [Suspect]
     Active Substance: OMALIZUMAB
  7. XOLAIR [Suspect]
     Active Substance: OMALIZUMAB
     Dosage: STRENGTH: 150MG?TWO SYRINGES OF 150MG
     Route: 058
     Dates: start: 20220929
  8. XOLAIR [Suspect]
     Active Substance: OMALIZUMAB
  9. XOLAIR [Suspect]
     Active Substance: OMALIZUMAB
     Dosage: STRENGTH: 75MG
     Route: 058
     Dates: start: 20220929
  10. XOLAIR [Suspect]
     Active Substance: OMALIZUMAB

REACTIONS (12)
  - Pneumonia [Unknown]
  - Injection site pain [Recovered/Resolved]
  - Rhinitis allergic [Unknown]
  - Chronic sinusitis [Unknown]
  - Essential hypertension [Unknown]
  - Gastrooesophageal reflux disease [Unknown]
  - Scoliosis [Unknown]
  - Excessive cerumen production [Unknown]
  - Eosinophilic oesophagitis [Unknown]
  - Migraine without aura [Unknown]
  - Dysphonia [Unknown]
  - Needle issue [Unknown]

NARRATIVE: CASE EVENT DATE: 20200904
